FAERS Safety Report 4389506-1 (Version None)
Quarter: 2004Q3

REPORT INFORMATION
  Report Type: 
  Country: None (occurrence: None)
  Receive Date: 20040702
  Receipt Date: 20040621
  Transmission Date: 20050211
  Serious: Yes (Hospitalization)
  Sender: FDA-Public Use
  Company Number: DE-GLAXOSMITHKLINE-B0336312A

PATIENT
  Age: 66 Year
  Sex: Male
  Weight: 70 kg

DRUGS (2)
  1. TOPOTECAN [Suspect]
     Indication: SMALL CELL LUNG CANCER STAGE UNSPECIFIED
     Dosage: 1MGM2 PER DAY
     Route: 042
     Dates: start: 20040611, end: 20040615
  2. CISPLATIN [Suspect]
     Indication: SMALL CELL LUNG CANCER STAGE UNSPECIFIED
     Dosage: 75MGM2 SINGLE DOSE
     Route: 042
     Dates: start: 20040615, end: 20040615

REACTIONS (5)
  - ANAEMIA [None]
  - DIARRHOEA [None]
  - HYPOTENSION [None]
  - PNEUMONIA PRIMARY ATYPICAL [None]
  - PYREXIA [None]
